FAERS Safety Report 6345565-8 (Version None)
Quarter: 2009Q3

REPORT INFORMATION
  Report Type: 
  Country: None (occurrence: None)
  Receive Date: 20090821
  Receipt Date: 20090622
  Transmission Date: 20100115
  Serious: No
  Sender: FDA-Public Use
  Company Number: 8046598

PATIENT
  Age: 23 Year
  Sex: Female
  Weight: 134.2 kg

DRUGS (11)
  1. CIMZIA [Suspect]
     Indication: CROHN'S DISEASE
     Dosage: 400 MG SC
     Route: 058
     Dates: start: 20081215
  2. ASACOL [Concomitant]
  3. AZASAN [Concomitant]
  4. PROPRANOLOL [Concomitant]
  5. CODEINE SUL TAB [Concomitant]
  6. ACIPHEX [Concomitant]
  7. SINGULAIR [Concomitant]
  8. ZOLPIDEM [Concomitant]
  9. DEPO-PROVERA [Concomitant]
  10. UNKNOWN ANTIBIOTIC [Concomitant]
  11. XYZAL [Concomitant]

REACTIONS (4)
  - DIARRHOEA [None]
  - NEOPLASM SKIN [None]
  - NIGHT SWEATS [None]
  - SUBCUTANEOUS ABSCESS [None]
